FAERS Safety Report 9015172 (Version 3)
Quarter: 2014Q3

REPORT INFORMATION
  Report Type: Spontaneous
  Country: US (occurrence: US)
  Receive Date: 20130115
  Receipt Date: 20140709
  Transmission Date: 20150326
  Serious: Yes (Hospitalization)
  Sender: FDA-Public Use
  Company Number: US-009507513-1301USA005107

PATIENT
  Sex: Female
  Weight: 113.38 kg

DRUGS (2)
  1. NUVARING [Suspect]
     Active Substance: ETHINYL ESTRADIOL\ETONOGESTREL
     Indication: CONTRACEPTION
     Dosage: UNK
     Route: 067
     Dates: start: 2009, end: 20091024
  2. NUVARING [Suspect]
     Active Substance: ETHINYL ESTRADIOL\ETONOGESTREL
     Indication: MENSTRUATION IRREGULAR

REACTIONS (18)
  - Thyroid cyst [Unknown]
  - Leukocytosis [Unknown]
  - Coagulopathy [Unknown]
  - Gastroenteritis [Unknown]
  - Goitre [Unknown]
  - Helminthic infection [Unknown]
  - Vomiting [Unknown]
  - Diarrhoea [Unknown]
  - Ascites [Unknown]
  - Abdominal pain lower [Unknown]
  - Nausea [Unknown]
  - Nausea [Unknown]
  - Pelvic venous thrombosis [Unknown]
  - Vena cava thrombosis [Unknown]
  - Off label use [Unknown]
  - Vomiting [Unknown]
  - Infectious colitis [Unknown]
  - Urinary tract infection [Unknown]

NARRATIVE: CASE EVENT DATE: 20090204
